FAERS Safety Report 7903183-1 (Version None)
Quarter: 2011Q4

REPORT INFORMATION
  Report Type: 
  Country: None (occurrence: None)
  Receive Date: 20111103
  Receipt Date: 20111027
  Transmission Date: 20120403
  Serious: Yes (Hospitalization)
  Sender: FDA-Public Use
  Company Number: 2011SP047005

PATIENT
  Age: 58 Year
  Sex: Female

DRUGS (3)
  1. SAPHRIS [Suspect]
     Indication: BIPOLAR DISORDER
     Dosage: BID;SL
     Route: 060
     Dates: start: 20100811, end: 20110927
  2. SAPHRIS [Suspect]
  3. CELEXA [Concomitant]

REACTIONS (11)
  - LOCAL SWELLING [None]
  - FLUSHING [None]
  - HYPERHIDROSIS [None]
  - BLOOD PRESSURE INCREASED [None]
  - DYSTONIA [None]
  - BLOOD GLUCOSE INCREASED [None]
  - BODY TEMPERATURE INCREASED [None]
  - THROAT TIGHTNESS [None]
  - DRY SKIN [None]
  - TREMOR [None]
  - JAW DISORDER [None]
